FAERS Safety Report 17057992 (Version 9)
Quarter: 2020Q4

REPORT INFORMATION
  Report Type: Spontaneous
  Country: CA (occurrence: CA)
  Receive Date: 20191121
  Receipt Date: 20201030
  Transmission Date: 20210113
  Serious: Yes (Other)
  Sender: FDA-Public Use
  Company Number: CA-PFIZER INC-2019211461

PATIENT
  Age: 54 Year
  Sex: Female

DRUGS (11)
  1. PREDNISONE. [Concomitant]
     Active Substance: PREDNISONE
     Indication: COLITIS ULCERATIVE
     Dosage: 35 MG, DAILY
     Route: 048
  2. PREDNISONE. [Concomitant]
     Active Substance: PREDNISONE
     Dosage: 10 MG, DAILY
     Dates: end: 20191114
  3. PANTOLOC [PANTOPRAZOLE] [Concomitant]
     Active Substance: PANTOPRAZOLE SODIUM
     Dosage: 40 MG, DAILY
     Route: 048
  4. VITAMINE D [Concomitant]
     Active Substance: CHOLECALCIFEROL
     Dosage: UNK, 1X/DAY
     Route: 065
  5. CALCIUM [Concomitant]
     Active Substance: CALCIUM
     Dosage: UNK
     Route: 048
  6. VITAMINE D [Concomitant]
     Active Substance: CHOLECALCIFEROL
     Dosage: UNK, 1X/DAY
     Route: 048
  7. TRAZODONE [Concomitant]
     Active Substance: TRAZODONE HYDROCHLORIDE
     Indication: SLEEP DISORDER
     Dosage: 1 DF, DAILY
     Route: 048
  8. XELJANZ [Suspect]
     Active Substance: TOFACITINIB CITRATE
     Indication: COLITIS ULCERATIVE
     Dosage: 10 MG, 2X/DAY
     Route: 048
     Dates: start: 20190510, end: 201907
  9. XELJANZ [Suspect]
     Active Substance: TOFACITINIB CITRATE
     Dosage: 5 MG, 2X/DAY
     Route: 048
     Dates: start: 201907, end: 2019
  10. PREDNISONE. [Concomitant]
     Active Substance: PREDNISONE
     Dosage: 30 MG, DAILY
     Route: 048
  11. XELJANZ [Suspect]
     Active Substance: TOFACITINIB CITRATE
     Dosage: 10 MG, 2X/DAY
     Route: 048
     Dates: start: 201909

REACTIONS (34)
  - Blood pressure increased [Recovered/Resolved]
  - Diarrhoea [Not Recovered/Not Resolved]
  - Influenza [Unknown]
  - Viral infection [Unknown]
  - Eye swelling [Unknown]
  - Pyrexia [Not Recovered/Not Resolved]
  - Skin burning sensation [Unknown]
  - Nasal polyps [Unknown]
  - Nasal cyst [Unknown]
  - Vision blurred [Unknown]
  - Nasopharyngitis [Not Recovered/Not Resolved]
  - Pneumonia [Unknown]
  - Fatigue [Not Recovered/Not Resolved]
  - Nausea [Unknown]
  - Muscle spasms [Unknown]
  - Hyperhidrosis [Unknown]
  - Chest pain [Unknown]
  - Haematochezia [Recovered/Resolved]
  - Ligament rupture [Unknown]
  - Cough [Unknown]
  - Sinusitis [Not Recovered/Not Resolved]
  - Dyspnoea [Unknown]
  - Rectal haemorrhage [Recovered/Resolved]
  - Oropharyngeal pain [Unknown]
  - Heart rate irregular [Unknown]
  - Condition aggravated [Unknown]
  - Abdominal distension [Recovering/Resolving]
  - Swelling face [Unknown]
  - Back pain [Unknown]
  - Renal pain [Unknown]
  - Acne [Not Recovered/Not Resolved]
  - Gastroenteritis viral [Recovering/Resolving]
  - C-reactive protein increased [Unknown]
  - Incorrect dosage administered [Unknown]

NARRATIVE: CASE EVENT DATE: 2019
